FAERS Safety Report 4356916-8 (Version None)
Quarter: 2004Q2

REPORT INFORMATION
  Report Type: 
  Country: None (occurrence: None)
  Receive Date: 20040507
  Receipt Date: 20040422
  Transmission Date: 20050107
  Serious: Yes (Hospitalization)
  Sender: FDA-Public Use
  Company Number: RS004410-B

PATIENT
  Age: 77 Year
  Sex: Male

DRUGS (1)
  1. RABEPRAZOLE SODIUM [Suspect]
     Indication: DUODENAL ULCER HAEMORRHAGE
     Dosage: 10 MG, 1 IN 1 D, ORAL; 20 MG, 2 IN 1 D, ORAL
     Route: 048

REACTIONS (3)
  - MALAISE [None]
  - PYREXIA [None]
  - RENAL FAILURE [None]
